FAERS Safety Report 25009286 (Version 1)
Quarter: 2025Q1

REPORT INFORMATION
  Report Type: Spontaneous
  Country: US (occurrence: None)
  Receive Date: 20250225
  Receipt Date: 20250225
  Transmission Date: 20250409
  Serious: Yes (Hospitalization)
  Sender: FDA-CTU
  Company Number: None

PATIENT
  Age: 60 Year
  Sex: Male
  Weight: 110 kg

DRUGS (3)
  1. XELODA [Suspect]
     Active Substance: CAPECITABINE
     Indication: Anal squamous cell carcinoma
     Route: 048
     Dates: start: 20250121
  2. MITOMYCIN C [Suspect]
     Active Substance: MITOMYCIN
     Indication: Anal squamous cell carcinoma
     Route: 042
     Dates: start: 20250121, end: 20250218
  3. RADIATION THERAPY [Suspect]
     Active Substance: RADIATION THERAPY
     Indication: Anal squamous cell carcinoma

REACTIONS (9)
  - Proctalgia [None]
  - Proctitis [None]
  - Intestinal mass [None]
  - Lymphadenopathy [None]
  - Leukopenia [None]
  - Anaemia [None]
  - Hyponatraemia [None]
  - Prothrombin time prolonged [None]
  - International normalised ratio increased [None]

NARRATIVE: CASE EVENT DATE: 20250223
